FAERS Safety Report 7112940-3 (Version None)
Quarter: 2010Q4

REPORT INFORMATION
  Report Type: 
  Country: None (occurrence: None)
  Receive Date: 20101119
  Receipt Date: 20101109
  Transmission Date: 20110411
  Serious: Yes (Death, Other)
  Sender: FDA-Public Use
  Company Number: US-BAYER-201041185NA

PATIENT
  Sex: Female

DRUGS (3)
  1. MAGNEVIST [Suspect]
     Indication: IMAGING PROCEDURE
     Route: 042
     Dates: start: 20050722, end: 20050722
  2. OMNISCAN [Suspect]
     Indication: IMAGING PROCEDURE
     Dates: start: 20050722, end: 20050722
  3. OPTIMARK [Suspect]
     Indication: IMAGING PROCEDURE
     Dates: start: 20050722, end: 20050722

REACTIONS (2)
  - NEPHROGENIC SYSTEMIC FIBROSIS [None]
  - SKIN FIBROSIS [None]
